FAERS Safety Report 7935130-0 (Version None)
Quarter: 2011Q4

REPORT INFORMATION
  Report Type: 
  Country: None (occurrence: None)
  Receive Date: 20111122
  Receipt Date: 20111116
  Transmission Date: 20120403
  Serious: Yes (Death, Hospitalization, Other)
  Sender: FDA-Public Use
  Company Number: PHHY2009JP26922

PATIENT
  Age: 52 Year
  Sex: Female

DRUGS (3)
  1. AREDIA [Suspect]
     Indication: METASTASES TO BONE
  2. CHEMOTHERAPEUTICS NOS [Concomitant]
     Dosage: UNK UKN, UNK
     Dates: start: 20030101
  3. AREDIA [Suspect]
     Indication: HYPERCALCAEMIA
     Dosage: 90 MG, DAILY
     Route: 042
     Dates: start: 20040101

REACTIONS (28)
  - RENAL IMPAIRMENT [None]
  - OEDEMA PERIPHERAL [None]
  - BREAST MASS [None]
  - NAUSEA [None]
  - PERICARDIAL EFFUSION [None]
  - HAEMATOCRIT DECREASED [None]
  - METASTASES TO LIVER [None]
  - NEPHROTIC SYNDROME [None]
  - BLOOD CREATININE INCREASED [None]
  - HYPOALBUMINAEMIA [None]
  - DECREASED APPETITE [None]
  - GENERAL PHYSICAL HEALTH DETERIORATION [None]
  - FLUID RETENTION [None]
  - BLOOD PHOSPHORUS INCREASED [None]
  - PLEURAL DISORDER [None]
  - HAEMOGLOBIN DECREASED [None]
  - PROTEIN URINE PRESENT [None]
  - PROTEIN TOTAL DECREASED [None]
  - NEOPLASM MALIGNANT [None]
  - BONE PAIN [None]
  - DYSPNOEA [None]
  - NEOPLASM PROGRESSION [None]
  - METASTASES TO LUNG [None]
  - LYMPHADENOPATHY [None]
  - FOCAL SEGMENTAL GLOMERULOSCLEROSIS [None]
  - BLOOD URIC ACID INCREASED [None]
  - BLOOD CALCIUM INCREASED [None]
  - BLOOD PRESSURE INCREASED [None]
